FAERS Safety Report 5168890-5 (Version None)
Quarter: 2006Q4

REPORT INFORMATION
  Report Type: 
  Country: None (occurrence: None)
  Receive Date: 20061206
  Receipt Date: 20061206
  Transmission Date: 20070319
  Serious: No
  Sender: FDA-Public Use
  Company Number: None

PATIENT
  Age: 57 Year
  Sex: Male
  Weight: 93.441 kg

DRUGS (1)
  1. GADOLINIUM CONTRAST [Suspect]
     Indication: ANGIOGRAM
     Dosage: 125 MLS IVP
     Route: 042
     Dates: start: 20060321

REACTIONS (2)
  - NEPHROPATHY TOXIC [None]
  - RENAL FAILURE ACUTE [None]
